FAERS Safety Report 24304830 (Version 10)
Quarter: 2025Q3

REPORT INFORMATION
  Report Type: Report from Study
  Country: US (occurrence: US)
  Receive Date: 20240910
  Receipt Date: 20250901
  Transmission Date: 20251020
  Serious: Yes (Hospitalization, Other)
  Sender: TAKEDA
  Company Number: US-TAKEDA-2023TUS109792

PATIENT
  Age: 69 Year
  Sex: Female
  Weight: 68 kg

DRUGS (51)
  1. HUMAN IMMUNOGLOBULIN G [Suspect]
     Active Substance: HUMAN IMMUNOGLOBULIN G
     Indication: Immunodeficiency common variable
     Dosage: 10 GRAM, 1/WEEK
  2. EPINEPHRINE [Concomitant]
     Active Substance: EPINEPHRINE
  3. ACETAMINOPHEN [Concomitant]
     Active Substance: ACETAMINOPHEN
  4. PREDNISONE [Concomitant]
     Active Substance: PREDNISONE
  5. TELMISARTAN [Concomitant]
     Active Substance: TELMISARTAN
  6. FOLIC ACID [Concomitant]
     Active Substance: FOLIC ACID
  7. ACETAMINOPHEN\HYDROCODONE [Concomitant]
     Active Substance: ACETAMINOPHEN\HYDROCODONE
  8. GEMTESA [Concomitant]
     Active Substance: VIBEGRON
  9. POTASSIUM CHLORIDE [Concomitant]
     Active Substance: POTASSIUM CHLORIDE
  10. LASIX [Concomitant]
     Active Substance: FUROSEMIDE
  11. TRILEPTAL [Concomitant]
     Active Substance: OXCARBAZEPINE
  12. ESOMEPRAZOLE MAGNESIUM [Concomitant]
     Active Substance: ESOMEPRAZOLE MAGNESIUM
  13. BREZTRI [Concomitant]
     Active Substance: BUDESONIDE\FORMOTEROL\GLYCOPYRROLATE
  14. PRAVASTATIN SODIUM [Concomitant]
     Active Substance: PRAVASTATIN SODIUM
  15. VITAMIN D [Concomitant]
     Active Substance: VITAMIN D NOS
  16. NEXIUM [Concomitant]
     Active Substance: ESOMEPRAZOLE MAGNESIUM
  17. DICYCLOMINE HYDROCHLORIDE [Concomitant]
     Active Substance: DICYCLOMINE HYDROCHLORIDE
  18. DILTIAZEM HYDROCHLORIDE [Concomitant]
     Active Substance: DILTIAZEM HYDROCHLORIDE
  19. TIZANIDINE HYDROCHLORIDE [Concomitant]
     Active Substance: TIZANIDINE HYDROCHLORIDE
  20. OLANZAPINE [Concomitant]
     Active Substance: OLANZAPINE
  21. DEXTROAMPHETAMINE [Concomitant]
     Active Substance: DEXTROAMPHETAMINE
  22. AMPHETAMINE [Concomitant]
     Active Substance: AMPHETAMINE
  23. FLUOXETINE HYDROCHLORIDE [Concomitant]
     Active Substance: FLUOXETINE HYDROCHLORIDE
  24. TRAZODONE HCL [Concomitant]
     Active Substance: TRAZODONE HYDROCHLORIDE
  25. DIPHENHYDRAMINE HYDROCHLORIDE [Concomitant]
     Active Substance: DIPHENHYDRAMINE HYDROCHLORIDE
  26. Lmx [Concomitant]
  27. PROAIR DIGIHALER [Concomitant]
     Active Substance: ALBUTEROL SULFATE
  28. FAMOTIDINE [Concomitant]
     Active Substance: FAMOTIDINE
  29. ASPIRIN [Concomitant]
     Active Substance: ASPIRIN
  30. FEXOFENADINE HYDROCHLORIDE [Concomitant]
     Active Substance: FEXOFENADINE HYDROCHLORIDE
  31. LEVOTHYROXINE SODIUM [Concomitant]
     Active Substance: LEVOTHYROXINE SODIUM
  32. LYRICA [Concomitant]
     Active Substance: PREGABALIN
  33. ESCITALOPRAM OXALATE [Concomitant]
     Active Substance: ESCITALOPRAM OXALATE
  34. FLUCONAZOLE [Concomitant]
     Active Substance: FLUCONAZOLE
  35. OXYCODONE HYDROCHLORIDE [Concomitant]
     Active Substance: OXYCODONE HYDROCHLORIDE
  36. TOLVAPTAN [Concomitant]
     Active Substance: TOLVAPTAN
  37. PROLIA [Concomitant]
     Active Substance: DENOSUMAB
  38. EZETIMIBE [Concomitant]
     Active Substance: EZETIMIBE
  39. AZELASTINE HYDROCHLORIDE [Concomitant]
     Active Substance: AZELASTINE HYDROCHLORIDE
  40. BIOTIN [Concomitant]
     Active Substance: BIOTIN
  41. FLUTICASONE PROPIONATE HFA [Concomitant]
     Active Substance: FLUTICASONE PROPIONATE
  42. TOPROL XL [Concomitant]
     Active Substance: METOPROLOL SUCCINATE
  43. TRAMADOL HCL [Concomitant]
     Active Substance: TRAMADOL HYDROCHLORIDE
  44. ATROVENT HFA [Concomitant]
     Active Substance: IPRATROPIUM BROMIDE
  45. COLACE [Concomitant]
     Active Substance: DOCUSATE SODIUM
  46. VITAMIN E [Concomitant]
     Active Substance: .ALPHA.-TOCOPHEROL
  47. IPRATROPIUM BROMIDE [Concomitant]
     Active Substance: IPRATROPIUM BROMIDE
  48. ADDERALL [Concomitant]
     Active Substance: AMPHETAMINE ASPARTATE\AMPHETAMINE SULFATE\DEXTROAMPHETAMINE SACCHARATE\DEXTROAMPHETAMINE SULFATE
  49. HYDROXYZINE HYDROCHLORIDE [Concomitant]
     Active Substance: HYDROXYZINE HYDROCHLORIDE
  50. VITAMIN B [Concomitant]
     Active Substance: VITAMIN B
  51. NEOSPORIN [Concomitant]
     Active Substance: BACITRACIN ZINC\NEOMYCIN SULFATE\POLYMYXIN B SULFATE

REACTIONS (34)
  - Spinal fracture [Unknown]
  - Kidney infection [Unknown]
  - Genital pain [Unknown]
  - Insurance issue [Unknown]
  - Nasopharyngitis [Unknown]
  - Administration site reaction [Unknown]
  - Administration site discharge [Unknown]
  - Device issue [Unknown]
  - Bradyphrenia [Unknown]
  - Illness [Unknown]
  - Seasonal allergy [Unknown]
  - Urinary tract infection [Unknown]
  - Product dose omission in error [Unknown]
  - Inappropriate schedule of product administration [Unknown]
  - Product use issue [Unknown]
  - Limb injury [Unknown]
  - Fall [Unknown]
  - Shoulder fracture [Unknown]
  - Blood sodium decreased [Unknown]
  - Stress [Unknown]
  - Infusion site discharge [Unknown]
  - Product dose omission issue [Unknown]
  - Skin tightness [Unknown]
  - Multiple allergies [Unknown]
  - Postoperative wound infection [Unknown]
  - Sensitive skin [Unknown]
  - Skin exfoliation [Unknown]
  - Injection site haemorrhage [Unknown]
  - Influenza [Unknown]
  - Contusion [Unknown]
  - Cough [Unknown]
  - Infusion site erythema [Recovered/Resolved]
  - Malaise [Unknown]
  - Arthralgia [Unknown]

NARRATIVE: CASE EVENT DATE: 20240318
